FAERS Safety Report 17251401 (Version 1)
Quarter: 2019Q4

REPORT INFORMATION
  Report Type: Spontaneous
  Country: US (occurrence: US)
  Receive Date: 20191216
  Receipt Date: 20191216
  Transmission Date: 20200122
  Serious: No
  Sender: FDA-Public Use
  Company Number: None

PATIENT
  Age: 57 Year
  Sex: Male

DRUGS (1)
  1. ODOMZO [Suspect]
     Active Substance: SONIDEGIB
     Indication: BASAL CELL CARCINOMA
     Route: 048
     Dates: start: 201910, end: 20191214

REACTIONS (4)
  - Pyrexia [None]
  - Myalgia [None]
  - Muscle enzyme increased [None]
  - Therapy cessation [None]

NARRATIVE: CASE EVENT DATE: 20191215
